FAERS Safety Report 12298764 (Version 1)
Quarter: 2016Q2

REPORT INFORMATION
  Report Type: Spontaneous
  Country: US (occurrence: US)
  Receive Date: 20160425
  Receipt Date: 20160425
  Transmission Date: 20160815
  Serious: No
  Sender: FDA-Public Use
  Company Number: US-009507513-1604USA004713

PATIENT
  Age: 30 Year
  Sex: Female
  Weight: 89.8 kg

DRUGS (1)
  1. NEXPLANON [Suspect]
     Active Substance: ETONOGESTREL
     Indication: CONTRACEPTION
     Dosage: 1 ROD UP TO 3 YEARS, RIGHT ARM
     Route: 059
     Dates: start: 20160325

REACTIONS (4)
  - Implant site swelling [Unknown]
  - Pain in extremity [Unknown]
  - Mobility decreased [Unknown]
  - Implant site irritation [Unknown]

NARRATIVE: CASE EVENT DATE: 20160327
